FAERS Safety Report 12942700 (Version 3)
Quarter: 2016Q4

REPORT INFORMATION
  Report Type: Spontaneous
  Country: US (occurrence: US)
  Receive Date: 20161115
  Receipt Date: 20161124
  Transmission Date: 20170207
  Serious: Yes (Other)
  Sender: FDA-Public Use
  Company Number: US-HORIZON-RAV-0243-2016

PATIENT
  Age: 49 Year
  Sex: Male

DRUGS (1)
  1. RAVICTI [Suspect]
     Active Substance: GLYCEROL PHENYLBUTYRATE
     Indication: UREA CYCLE ENZYME DEFICIENCY
     Dosage: 4.5 ML, TID

REACTIONS (3)
  - Ammonia increased [Unknown]
  - Ill-defined disorder [Recovering/Resolving]
  - Somnolence [Recovering/Resolving]
